FAERS Safety Report 8574503-2 (Version None)
Quarter: 2012Q3

REPORT INFORMATION
  Report Type: 
  Country: None (occurrence: None)
  Receive Date: 20120806
  Receipt Date: 20120203
  Transmission Date: 20120928
  Serious: No
  Sender: FDA-Public Use
  Company Number: US-ABBOTT-12P-163-0893497-00

PATIENT
  Age: 52 Year
  Sex: Female
  Weight: 51.302 kg

DRUGS (2)
  1. DEPAKOTE ER [Suspect]
     Indication: INTRACRANIAL ANEURYSM
  2. DEPAKOTE ER [Suspect]
     Indication: CONVULSION
     Route: 048

REACTIONS (9)
  - TREMOR [None]
  - ALOPECIA [None]
  - BONE LOSS [None]
  - CLAVICLE FRACTURE [None]
  - SINUSITIS [None]
  - BALANCE DISORDER [None]
  - GAIT DISTURBANCE [None]
  - HEADACHE [None]
  - DRY MOUTH [None]
